FAERS Safety Report 22382984 (Version 1)
Quarter: 2023Q2

REPORT INFORMATION
  Report Type: Spontaneous
  Country: US (occurrence: None)
  Receive Date: 20230526
  Receipt Date: 20230526
  Transmission Date: 20230722
  Serious: No
  Sender: FDA-Public Use
  Company Number: None

PATIENT
  Age: 33 Year
  Sex: Male

DRUGS (2)
  1. COSENTYX [Suspect]
     Active Substance: SECUKINUMAB
     Dosage: OTHER FREQUENCY : ONCE EVERY MONTH;?
     Route: 058
     Dates: start: 20220916
  2. METHOTREXATE [Suspect]
     Active Substance: METHOTREXATE

REACTIONS (2)
  - Eye irritation [None]
  - Photophobia [None]

NARRATIVE: CASE EVENT DATE: 20230519
